FAERS Safety Report 13558713 (Version 1)
Quarter: 2017Q2

REPORT INFORMATION
  Report Type: Spontaneous
  Country: US (occurrence: US)
  Receive Date: 20170518
  Receipt Date: 20170518
  Transmission Date: 20170830
  Serious: Yes (Hospitalization)
  Sender: FDA-Public Use
  Company Number: None

PATIENT
  Age: 66 Year
  Sex: Female
  Weight: 97.06 kg

DRUGS (4)
  1. CYTARABINE. [Suspect]
     Active Substance: CYTARABINE
     Dates: end: 20170423
  2. ETOPOSIDE (VP-16) [Suspect]
     Active Substance: ETOPOSIDE
     Dates: end: 20170423
  3. METHOTREXATE. [Suspect]
     Active Substance: METHOTREXATE
     Dates: end: 20170308
  4. RITUXIMAB (MOAB C2B8 ANTI CD20, CHIMERIC) [Suspect]
     Active Substance: RITUXIMAB
     Dates: end: 20161230

REACTIONS (20)
  - Abdominal pain lower [None]
  - Diarrhoea [None]
  - Cholangitis [None]
  - Blood creatinine decreased [None]
  - Discoloured vomit [None]
  - Biliary dilatation [None]
  - Nausea [None]
  - Blood calcium decreased [None]
  - Blood albumin decreased [None]
  - Blood pressure decreased [None]
  - Protein total decreased [None]
  - Neutrophil count decreased [None]
  - Haemoglobin decreased [None]
  - Platelet count decreased [None]
  - Tachycardia [None]
  - Blood phosphorus decreased [None]
  - Blood magnesium decreased [None]
  - Blood urea decreased [None]
  - Pyrexia [None]
  - Blood bilirubin increased [None]

NARRATIVE: CASE EVENT DATE: 20170428
